FAERS Safety Report 8669676 (Version 2)
Quarter: 2012Q4

REPORT INFORMATION
  Report Type: 
  Country: JP (occurrence: JP)
  Receive Date: 20120718
  Receipt Date: 20120904
  Transmission Date: 20130627
  Serious: Yes (Hospitalization, Disabling)
  Sender: FDA-Public Use
  Company Number: JP-AMGEN-JPNCT2012043381

PATIENT
  Age: 59 Year
  Sex: Female
  Weight: 41 kg

DRUGS (8)
  1. DARBEPOETIN ALFA [Suspect]
     Indication: NEPHROGENIC ANAEMIA
     Dosage: 60 mug, qd
     Route: 040
     Dates: start: 20110523, end: 20110523
  2. LASIX [Concomitant]
     Indication: NEPHROSCLEROSIS
     Dosage: Uncertainty
     Route: 048
  3. CRESTOR [Concomitant]
     Dosage: Uncertainty
     Route: 048
  4. CALBLOCK [Concomitant]
     Dosage: Uncertainty
     Route: 048
  5. DIOVAN [Concomitant]
     Dosage: Uncertainty
     Route: 048
  6. ZYLORIC [Concomitant]
     Dosage: Uncertainty
     Route: 048
  7. KREMEZIN [Concomitant]
     Indication: NEPHROSCLEROSIS
     Dosage: Uncertainty
     Route: 048
  8. MYSLEE [Concomitant]
     Dosage: Uncertainty
     Route: 048

REACTIONS (1)
  - Cerebral haemorrhage [Recovered/Resolved with Sequelae]
